FAERS Safety Report 6329522-3 (Version None)
Quarter: 2009Q3

REPORT INFORMATION
  Report Type: 
  Country: None (occurrence: None)
  Receive Date: 20090825
  Receipt Date: 20090825
  Transmission Date: 20100115
  Serious: Yes (Other)
  Sender: FDA-Public Use
  Company Number: None

PATIENT
  Age: 68 Year
  Sex: Female
  Weight: 68.0396 kg

DRUGS (1)
  1. POLYMYXIN B SULFATES AND TRIMETHOPRIM SULFATE [Suspect]
     Indication: EYE INFECTION BACTERIAL
     Dosage: 2 DROPS EACH EYE EVERY 3 HOURS OPTHALMIC
     Route: 047
     Dates: start: 20090817, end: 20090818

REACTIONS (8)
  - APRAXIA [None]
  - EYE IRRITATION [None]
  - EYE PRURITUS [None]
  - EYE SWELLING [None]
  - FOREIGN BODY SENSATION IN EYES [None]
  - LACRIMATION INCREASED [None]
  - OCULAR DISCOMFORT [None]
  - OCULAR HYPERAEMIA [None]
